FAERS Safety Report 5894345-6 (Version None)
Quarter: 2008Q3

REPORT INFORMATION
  Report Type: 
  Country: None (occurrence: None)
  Receive Date: 20080922
  Receipt Date: 20080910
  Transmission Date: 20090109
  Serious: Yes (Other)
  Sender: FDA-Public Use
  Company Number: 238672J08USA

PATIENT
  Age: 53 Year
  Sex: Female

DRUGS (1)
  1. REBIF [Suspect]
     Indication: MULTIPLE SCLEROSIS
     Dosage: 44 MCG, 3 IN 1 WEEKS, SUBCUTANEOUS
     Route: 058
     Dates: start: 20070606

REACTIONS (5)
  - CEREBROVASCULAR ACCIDENT [None]
  - FACIAL PAIN [None]
  - FACIAL PALSY [None]
  - INTRACRANIAL ANEURYSM [None]
  - WALKING AID USER [None]
